FAERS Safety Report 15291540 (Version 3)
Quarter: 2018Q3

REPORT INFORMATION
  Report Type: Spontaneous
  Country: CA (occurrence: CA)
  Receive Date: 20180817
  Receipt Date: 20180921
  Transmission Date: 20181010
  Serious: Yes (Hospitalization, Other)
  Sender: FDA-Public Use
  Company Number: CA-CELLTRION INC.-2018CA021568

PATIENT

DRUGS (4)
  1. FENTANYL. [Concomitant]
     Active Substance: FENTANYL
     Dosage: UNK
  2. LANSOPRAZOLE. [Concomitant]
     Active Substance: LANSOPRAZOLE
     Dosage: UNK
  3. INFLECTRA [Suspect]
     Active Substance: INFLIXIMAB-DYYB
     Dosage: 6 MG/KG, CYCLIC (EVERY0,2,6 WEEKS THEN EVERY 8 WEEKS);
     Route: 042
     Dates: start: 20180828
  4. INFLECTRA [Suspect]
     Active Substance: INFLIXIMAB-DYYB
     Indication: RHEUMATOID ARTHRITIS
     Dosage: 6 MG/KG, CYCLIC (EVERY0,2,6 WEEKS THEN EVERY 8 WEEKS);
     Route: 042
     Dates: start: 20180731

REACTIONS (11)
  - Staphylococcal infection [Unknown]
  - Cellulitis [Recovered/Resolved]
  - Drug prescribing error [Unknown]
  - Vomiting [Unknown]
  - Crying [Recovered/Resolved]
  - Fatigue [Unknown]
  - Feeling of body temperature change [Unknown]
  - Disease recurrence [Unknown]
  - Mood altered [Recovered/Resolved]
  - Inappropriate schedule of drug administration [Unknown]
  - Rash [Unknown]

NARRATIVE: CASE EVENT DATE: 20180806
